FAERS Safety Report 5937204-2 (Version None)
Quarter: 2008Q4

REPORT INFORMATION
  Report Type: 
  Country: None (occurrence: None)
  Receive Date: 20081031
  Receipt Date: 20081017
  Transmission Date: 20090506
  Serious: Yes (Hospitalization)
  Sender: FDA-Public Use
  Company Number: DE-AMGEN-UK305014

PATIENT
  Sex: Male
  Weight: 64 kg

DRUGS (9)
  1. NEULASTA [Suspect]
     Indication: CHEMOTHERAPY
     Route: 058
     Dates: start: 20080425
  2. CISPLATIN [Suspect]
     Dates: start: 20080422
  3. TAXOTERE [Suspect]
     Dates: start: 20080422
  4. ZOMETA [Concomitant]
     Dates: start: 20080422, end: 20080520
  5. DEXAMETHASONE [Concomitant]
     Route: 042
     Dates: start: 20080422
  6. NAVOBAN [Concomitant]
     Route: 042
     Dates: start: 20080422
  7. NOVORAPID [Concomitant]
     Dates: start: 20080201
  8. ISOPHANE INSULIN [Concomitant]
     Route: 065
     Dates: start: 20080101
  9. EMEND [Concomitant]
     Route: 048
     Dates: start: 20080401, end: 20080601

REACTIONS (7)
  - ATAXIA [None]
  - AXONAL NEUROPATHY [None]
  - BLOOD GLUCOSE INCREASED [None]
  - DIZZINESS [None]
  - HYPOAESTHESIA [None]
  - MUSCULAR WEAKNESS [None]
  - TREATMENT NONCOMPLIANCE [None]
